FAERS Safety Report 25918702 (Version 2)
Quarter: 2025Q4

REPORT INFORMATION
  Report Type: Spontaneous
  Country: JP (occurrence: JP)
  Receive Date: 20251014
  Receipt Date: 20251216
  Transmission Date: 20260117
  Serious: Yes (Death, Hospitalization)
  Sender: AMGEN
  Company Number: JP-AMGEN-JPNSP2025200567

PATIENT

DRUGS (3)
  1. BEVACIZUMAB [Suspect]
     Active Substance: BEVACIZUMAB
     Indication: Colon cancer
     Dosage: 7.5 MILLIGRAM/KILOGRAM, (DRIP INFUSION)
     Route: 040
  2. TS-1 [Concomitant]
     Active Substance: GIMERACIL\OTERACIL POTASSIUM\TEGAFUR
     Indication: Colon cancer
     Dosage: 80 MILLIGRAM/SQ. METER (2 DOSES)
     Route: 065
  3. TS-1 [Concomitant]
     Active Substance: GIMERACIL\OTERACIL POTASSIUM\TEGAFUR
     Dosage: 130 MILLIGRAM/SQ. METER, Q3WK (1 COURSE)
     Route: 065

REACTIONS (4)
  - Colon cancer recurrent [Fatal]
  - Procedural haemorrhage [Unknown]
  - Post procedural complication [Unknown]
  - Suture related complication [Unknown]
